FAERS Safety Report 23472535 (Version 1)
Quarter: 2024Q1

REPORT INFORMATION
  Report Type: Spontaneous
  Country: CA (occurrence: CA)
  Receive Date: 20240202
  Receipt Date: 20240202
  Transmission Date: 20240410
  Serious: Yes (Death, Life-Threatening, Hospitalization, Other)
  Sender: FDA-Public Use
  Company Number: CA-PFIZER INC-PV202300189336

PATIENT
  Age: 2 Year
  Sex: Female

DRUGS (12)
  1. RAPAMUNE [Suspect]
     Active Substance: SIROLIMUS
     Indication: Neuroblastoma recurrent
     Dosage: DAY 1: 1.6 MG (3MG/M2)  DAY2-4: 0.53MG (1MG/M2)
     Route: 048
     Dates: start: 20231120
  2. RAPAMUNE [Suspect]
     Active Substance: SIROLIMUS
     Indication: Chemotherapy
     Dosage: DAY 1: 1.6 MG (3MG/M2)  DAY2-4 0.53MG (1MG/M2)
     Route: 048
     Dates: start: 20231120
  3. ACCUTANE [Concomitant]
     Active Substance: ISOTRETINOIN
     Dosage: 40 MG, 2X/DAY
     Route: 048
     Dates: start: 20230622
  4. DASATINIB [Concomitant]
     Active Substance: DASATINIB
     Dosage: 20 MG, 1X/DAY(2 TABS AS A SINGLE DOSE FOR 1 DAY THEN TABLET ONCE DAILY FOR 3 DAYS)
     Dates: start: 20231118
  5. APO ONDANSETRON [Concomitant]
     Dosage: 3 ML, AS NEEDED (EVERY 8 HRS AS NEEDED)
     Route: 048
     Dates: start: 20230815
  6. IBUPROFEN [Concomitant]
     Active Substance: IBUPROFEN
     Dosage: 1.2 ML, (1.2MG) BY MOUTH SIX TIMES A DAY FOR 10 DAYS
     Route: 048
     Dates: start: 20230818
  7. HAVRIX JUNIOR [Concomitant]
     Dosage: 0.5 ML, INJECTION BY DOCTOR
     Dates: start: 20220528
  8. PDP DESONIDE [Concomitant]
     Dosage: UNK, DAILY (APPLY TO AFFECTED AREAS)
     Dates: start: 20220223
  9. NOVO TRIMEL [Concomitant]
     Dosage: 3.5 ML, 2X/DAY (28 MG TRIMETHOVIM) BY MOUTH TWICE A DAY ON SATURDAYS AND SUNDAYS
     Route: 048
     Dates: start: 20230619
  10. IRINOTECAN [Concomitant]
     Active Substance: IRINOTECAN
     Indication: Neuroblastoma recurrent
     Dosage: UNK
  11. TEMOZOLOMIDE [Concomitant]
     Active Substance: TEMOZOLOMIDE
     Indication: Neuroblastoma recurrent
     Dosage: UNK
  12. DASATINIB [Concomitant]
     Active Substance: DASATINIB
     Indication: Neuroblastoma recurrent
     Dosage: UNK

REACTIONS (7)
  - Neoplasm progression [Fatal]
  - Cancer pain [Not Recovered/Not Resolved]
  - Dyspnoea [Not Recovered/Not Resolved]
  - Somnolence [Not Recovered/Not Resolved]
  - Pyrexia [Not Recovered/Not Resolved]
  - Off label use [Unknown]
  - Off label use [Unknown]

NARRATIVE: CASE EVENT DATE: 20231128
